FAERS Safety Report 4440616-X (Version None)
Quarter: 2004Q3

REPORT INFORMATION
  Report Type: 
  Country: None (occurrence: None)
  Receive Date: 20040831
  Receipt Date: 20040518
  Transmission Date: 20050211
  Serious: Yes (Hospitalization, Other)
  Sender: FDA-Public Use
  Company Number: USA040567539

PATIENT
  Age: 55 Year
  Sex: Male
  Weight: 55 kg

DRUGS (2)
  1. SYMBYAX [Suspect]
     Indication: BIPOLAR I DISORDER
  2. AMBIEN [Concomitant]

REACTIONS (1)
  - GRAND MAL CONVULSION [None]
